FAERS Safety Report 8523236-7 (Version None)
Quarter: 2012Q3

REPORT INFORMATION
  Report Type: 
  Country: None (occurrence: None)
  Receive Date: 20120709
  Receipt Date: 20120629
  Transmission Date: 20120928
  Serious: Yes (Other)
  Sender: FDA-Public Use
  Company Number: 7141358

PATIENT
  Age: 50 Year
  Sex: Female

DRUGS (19)
  1. NAUSEA (NAUSEA (10028813)) [Concomitant]
  2. COLD (NASOPHARYNGITIS (10028810)) [Concomitant]
  3. HEADACHE (HEADACHE (10019211)) [Concomitant]
  4. CRAMPS (MUSCLE SPASMS (10028334)) [Concomitant]
  5. ANALGESIC (UNSPECIFIED)(ANALGESICS) [Concomitant]
  6. CONSTIPATION (CONSTIPATION (10010774)) [Concomitant]
  7. TACHYCARDIA (TACHYCARDIA (10043071)) [Concomitant]
  8. MUSCLE WEAKNESS (MUSCULAR WEAKNESS (10028372)) [Concomitant]
  9. CLONAZEPAM [Concomitant]
  10. LEVOTHYROXINE SODIUM [Suspect]
     Indication: HYPOTHYROIDISM
     Dosage: 50 MCG (50 MCG, 1 IN 1 D) ORAL
     Route: 048
     Dates: start: 20120531, end: 20120602
  11. GASTRITIS (GASTRITIS (10017853)) [Concomitant]
  12. ITCH (PRURITUS (10037087)) [Concomitant]
  13. MISSING MENSTRUATION (AMENORRHOEA (10001928)) [Concomitant]
  14. NERVOUSNESS (NERVOUSNESS (10029216)) [Concomitant]
  15. HEARTBURN (DYSPEPSIA (10013946)) [Concomitant]
  16. TREMORS ALL OVER THE BODY (TREMOR (10044565)) [Concomitant]
  17. ANGINA (ANGINA PECTORIS (10002383)) [Concomitant]
  18. TIREDNESS (FATIGUE (10016256)) [Concomitant]
  19. REDNESS ALL OVER THE BODY (GENERALISED ERYTHEMA (10051576)) [Concomitant]

REACTIONS (17)
  - DYSPEPSIA [None]
  - TREMOR [None]
  - ANGINA PECTORIS [None]
  - NERVOUSNESS [None]
  - GASTRITIS [None]
  - GENERALISED ERYTHEMA [None]
  - HYPERSENSITIVITY [None]
  - CONSTIPATION [None]
  - NAUSEA [None]
  - TACHYCARDIA [None]
  - PRURITUS [None]
  - MUSCULAR WEAKNESS [None]
  - FATIGUE [None]
  - NASOPHARYNGITIS [None]
  - AMENORRHOEA [None]
  - HEADACHE [None]
  - MUSCLE SPASMS [None]
